FAERS Safety Report 8307555-5 (Version None)
Quarter: 2012Q2

REPORT INFORMATION
  Report Type: 
  Country: None (occurrence: None)
  Receive Date: 20120424
  Receipt Date: 20120416
  Transmission Date: 20120825
  Serious: Yes (Other)
  Sender: FDA-Public Use
  Company Number: US-PFIZER INC-2012065257

PATIENT
  Sex: Female
  Weight: 65.306 kg

DRUGS (4)
  1. CHANTIX [Suspect]
     Indication: THERAPY CESSATION
     Dosage: 1 MG, 2X/DAY
     Route: 048
     Dates: start: 20120101, end: 20120224
  2. BENICAR [Concomitant]
     Dosage: 5 MG, UNK
  3. SYNTHROID [Concomitant]
     Dosage: 175 UG, 2X/DAY
  4. CHANTIX [Suspect]
     Indication: SMOKING CESSATION THERAPY
     Dosage: 0.5 MG, 1X/DAY
     Route: 048
     Dates: start: 20120120, end: 20120101

REACTIONS (3)
  - SKIN EXFOLIATION [None]
  - ARTHRALGIA [None]
  - RASH [None]
